FAERS Safety Report 6205405-4 (Version None)
Quarter: 2009Q2

REPORT INFORMATION
  Report Type: 
  Country: None (occurrence: None)
  Receive Date: 20090527
  Receipt Date: 20090319
  Transmission Date: 20091009
  Serious: No
  Sender: FDA-Public Use
  Company Number: US-ABBOTT-09P-163-0563710-00

PATIENT

DRUGS (7)
  1. SIMCOR [Suspect]
     Indication: BLOOD TRIGLYCERIDES INCREASED
     Dosage: 500/20 MG
     Route: 048
     Dates: start: 20090304
  2. STOOL SOFTENER [Concomitant]
     Indication: DRUG USE FOR UNKNOWN INDICATION
  3. CALCIUM [Concomitant]
     Indication: DRUG USE FOR UNKNOWN INDICATION
  4. FISH OIL [Concomitant]
     Indication: DRUG USE FOR UNKNOWN INDICATION
  5. M.V.I. [Concomitant]
     Indication: DRUG USE FOR UNKNOWN INDICATION
  6. METFORMIN HCL [Concomitant]
     Indication: DRUG USE FOR UNKNOWN INDICATION
     Route: 048
  7. ENALAPRIL MALEATE [Concomitant]
     Indication: DRUG USE FOR UNKNOWN INDICATION
     Route: 048

REACTIONS (1)
  - CONSTIPATION [None]
